FAERS Safety Report 10030639 (Version 1)
Quarter: 2014Q1

REPORT INFORMATION
  Report Type: Spontaneous
  Country: US (occurrence: US)
  Receive Date: 20140323
  Receipt Date: 20140323
  Transmission Date: 20141002
  Serious: No
  Sender: FDA-Public Use
  Company Number: US-ALLERGAN-1319195US

PATIENT
  Age: 68 Year
  Sex: Female

DRUGS (2)
  1. LATISSE 0.03% [Suspect]
     Indication: GROWTH OF EYELASHES
     Dosage: UNK UNK, QHS
     Route: 061
     Dates: start: 20131125, end: 20131126
  2. EYE DROP [Concomitant]
     Indication: DRY EYE
     Dosage: UNK UNK, QAM

REACTIONS (4)
  - Drug hypersensitivity [Unknown]
  - Incorrect dose administered [Unknown]
  - Application site erythema [Recovered/Resolved]
  - Eye pain [Recovered/Resolved]
